FAERS Safety Report 9109194 (Version 2)
Quarter: 2013Q1

REPORT INFORMATION
  Report Type: Spontaneous
  Country: US (occurrence: US)
  Receive Date: 20130222
  Receipt Date: 20130321
  Transmission Date: 20140127
  Serious: Yes (Hospitalization)
  Sender: FDA-Public Use
  Company Number: US-ALEXION-A201300294

PATIENT
  Age: 65 Year
  Sex: Female
  Weight: 96.15 kg

DRUGS (7)
  1. SOLIRIS 300MG [Suspect]
     Indication: PAROXYSMAL NOCTURNAL HAEMOGLOBINURIA
     Dosage: 900 MG, Q2W
     Route: 042
  2. CYMBALTA [Concomitant]
     Dosage: 30, TID
  3. DEXLANSOPRAZOLE [Concomitant]
     Dosage: 60, QD
  4. FOLIC ACID [Concomitant]
     Dosage: 2 DF, QD
  5. VITAMIN D3 [Concomitant]
     Dosage: 1 DF, TID
  6. GABAPENTIN [Concomitant]
     Dosage: 300 MG, BID
  7. LATANOPROST [Concomitant]
     Dosage: 1 DF, QD AT HS
     Route: 047

REACTIONS (4)
  - Gastrointestinal viral infection [Recovered/Resolved]
  - Haemoglobin decreased [Recovered/Resolved]
  - Chromaturia [Recovered/Resolved]
  - Haemolysis [Unknown]
